FAERS Safety Report 6935651-3 (Version None)
Quarter: 2010Q3

REPORT INFORMATION
  Report Type: 
  Country: None (occurrence: None)
  Receive Date: 20100823
  Receipt Date: 20100819
  Transmission Date: 20110219
  Serious: Yes (Other)
  Sender: FDA-Public Use
  Company Number: FR-WYE-G06566910

PATIENT
  Sex: Male

DRUGS (4)
  1. PIPERACILLIN AND TAZOBACTAM [Suspect]
     Indication: ANTIBIOTIC PROPHYLAXIS
     Dosage: UNKNOWN
     Route: 042
     Dates: start: 20100811
  2. AMBISOME [Concomitant]
     Dosage: UNKNOWN
  3. NOXAFIL [Suspect]
     Dosage: UNKNOWN
     Dates: end: 20100814
  4. CANCIDAS [Suspect]
     Dosage: UNKNOWN
     Dates: end: 20100819

REACTIONS (2)
  - CYTOLYTIC HEPATITIS [None]
  - GAMMA-GLUTAMYLTRANSFERASE INCREASED [None]
